FAERS Safety Report 18633398 (Version 1)
Quarter: 2020Q4

REPORT INFORMATION
  Report Type: Spontaneous
  Country: SE (occurrence: SE)
  Receive Date: 20201218
  Receipt Date: 20201218
  Transmission Date: 20210114
  Serious: Yes (Other)
  Sender: FDA-Public Use
  Company Number: SE-TEVA-2020-SE-1860522

PATIENT
  Sex: Female

DRUGS (1)
  1. AIROMIR [Suspect]
     Active Substance: ALBUTEROL SULFATE
     Route: 055

REACTIONS (5)
  - Syncope [Unknown]
  - Incorrect dose administered [Unknown]
  - Acidosis [Unknown]
  - Lung disorder [Unknown]
  - Peripheral coldness [Unknown]

NARRATIVE: CASE EVENT DATE: 20201214
